FAERS Safety Report 15587527 (Version 1)
Quarter: 2018Q4

REPORT INFORMATION
  Report Type: Spontaneous
  Country: US (occurrence: US)
  Receive Date: 20181106
  Receipt Date: 20181106
  Transmission Date: 20190205
  Serious: Yes (Disabling)
  Sender: FDA-Public Use
  Company Number: None

PATIENT
  Age: 58 Year
  Sex: Female
  Weight: 86.85 kg

DRUGS (1)
  1. PROTONIX [Suspect]
     Active Substance: PANTOPRAZOLE SODIUM
     Indication: GASTROOESOPHAGEAL REFLUX DISEASE
     Dosage: ?          QUANTITY:1 TABLET(S);?
     Route: 048
     Dates: start: 20170701, end: 20170728

REACTIONS (7)
  - Hypoaesthesia [None]
  - Anxiety [None]
  - Tinnitus [None]
  - Feeling abnormal [None]
  - Tremor [None]
  - Nausea [None]
  - Confusional state [None]

NARRATIVE: CASE EVENT DATE: 20170701
